FAERS Safety Report 10452802 (Version 2)
Quarter: 2014Q4

REPORT INFORMATION
  Report Type: Report from Study
  Country: BR (occurrence: BR)
  Receive Date: 20140915
  Receipt Date: 20141211
  Transmission Date: 20150528
  Serious: Yes (Death, Hospitalization, Other)
  Sender: FDA-Public Use
  Company Number: PHHY2014BR119070

PATIENT
  Age: 82 Year
  Sex: Female
  Weight: 90 kg

DRUGS (1)
  1. DIOVAN HCT [Suspect]
     Active Substance: HYDROCHLOROTHIAZIDE\VALSARTAN
     Indication: HYPERTENSION
     Dosage: 1 DF, QD
     Route: 048

REACTIONS (7)
  - Dementia Alzheimer^s type [Not Recovered/Not Resolved]
  - Depression [Not Recovered/Not Resolved]
  - Cardiac failure [Fatal]
  - Dysuria [Not Recovered/Not Resolved]
  - Pleural effusion [Not Recovered/Not Resolved]
  - Cardiac arrest [Fatal]
  - Movement disorder [Unknown]

NARRATIVE: CASE EVENT DATE: 20120406
